FAERS Safety Report 12672451 (Version 1)
Quarter: 2016Q3

REPORT INFORMATION
  Report Type: Spontaneous
  Country: US (occurrence: US)
  Receive Date: 20160822
  Receipt Date: 20160822
  Transmission Date: 20161109
  Serious: No
  Sender: FDA-Public Use
  Company Number: US-JNJFOC-20160708126

PATIENT
  Age: 78 Year
  Sex: Female
  Weight: 73.03 kg

DRUGS (4)
  1. WOMENS ROGAINE UNSCENTED [Suspect]
     Active Substance: MINOXIDIL
     Indication: ALOPECIA
     Dosage: A LITTLE LESS THEN 1/2 CAPFUL
     Route: 061
     Dates: end: 20160626
  2. WOMENS ROGAINE UNSCENTED [Suspect]
     Active Substance: MINOXIDIL
     Route: 061
  3. ENALAPRIL [Concomitant]
     Active Substance: ENALAPRIL
     Indication: HYPERTENSION
     Dosage: 2 YEAR
     Route: 065
  4. SYNTHROID [Concomitant]
     Active Substance: LEVOTHYROXINE SODIUM
     Indication: THYROID DISORDER
     Dosage: 6 1/2 YEARS
     Route: 065

REACTIONS (4)
  - Underdose [Not Recovered/Not Resolved]
  - Weight increased [Not Recovered/Not Resolved]
  - Product packaging issue [Unknown]
  - Dizziness [Not Recovered/Not Resolved]
